FAERS Safety Report 7036257-0 (Version None)
Quarter: 2010Q4

REPORT INFORMATION
  Report Type: 
  Country: None (occurrence: None)
  Receive Date: 20101008
  Receipt Date: 20100929
  Transmission Date: 20110411
  Serious: Yes (Other)
  Sender: FDA-Public Use
  Company Number: US-ABBOTT-10P-163-0674695-00

PATIENT
  Sex: Female
  Weight: 53.118 kg

DRUGS (5)
  1. LUPRON DEPOT [Suspect]
     Indication: ENDOMETRIOSIS
     Dates: start: 20100920
  2. NORETHINDRONE [Concomitant]
     Indication: HORMONE REPLACEMENT THERAPY
     Dates: start: 20100920, end: 20100923
  3. PROVENTIL-HFA [Concomitant]
     Indication: ASTHMA
     Route: 055
  4. ADVAIR DISKUS 100/50 [Concomitant]
     Indication: ASTHMA
     Route: 055
  5. SINGULAIR [Concomitant]
     Indication: ASTHMA

REACTIONS (2)
  - PRURITUS [None]
  - URTICARIA [None]
